FAERS Safety Report 20023502 (Version 1)
Quarter: 2021Q4

REPORT INFORMATION
  Report Type: Spontaneous
  Country: US (occurrence: US)
  Receive Date: 20211102
  Receipt Date: 20211102
  Transmission Date: 20220303
  Serious: Yes (Other)
  Sender: FDA-Public Use
  Company Number: US-AMNEAL PHARMACEUTICALS-2021-AMRX-04334

PATIENT
  Age: 26 Year
  Sex: Female
  Weight: 91 kg

DRUGS (12)
  1. ACTIVELLA [Suspect]
     Active Substance: ESTRADIOL\NORETHINDRONE ACETATE
     Indication: Endometriosis
     Dosage: 1 DOSAGE FORM, DAILY
     Route: 048
     Dates: start: 20191005, end: 20211013
  2. ELAGOLIX [Suspect]
     Active Substance: ELAGOLIX
     Indication: Endometriosis
     Dosage: 200 MILLIGRAM, 2X/DAY
     Route: 048
     Dates: start: 20191005, end: 20211014
  3. BENZALKONIUM CHLORIDE [Concomitant]
     Active Substance: BENZALKONIUM CHLORIDE
     Indication: Seasonal allergy
     Dosage: 5 MILLIGRAM, AS NEEDED
     Route: 048
     Dates: start: 2010
  4. CHOLECALCIFEROL [Concomitant]
     Active Substance: CHOLECALCIFEROL
     Indication: Nutritional supplementation
     Dosage: 1000 INTERNATIONAL UNIT, 2X/DAY
     Route: 048
     Dates: start: 20190408
  5. DIAZEPAM [Concomitant]
     Active Substance: DIAZEPAM
     Indication: Migraine
     Dosage: 5 MILLIGRAM, AS NEEDED
     Route: 048
     Dates: start: 20200311
  6. SUMATRIPTAN [Concomitant]
     Active Substance: SUMATRIPTAN
     Indication: Migraine
     Dosage: 100 MILLIGRAM, AS NEEDED
     Route: 048
     Dates: start: 20200311
  7. TOPIRAMATE [Concomitant]
     Active Substance: TOPIRAMATE
     Indication: Migraine
     Dosage: 1 AS NEEDED
     Route: 048
     Dates: start: 20200311
  8. TYLENOL [Concomitant]
     Active Substance: ACETAMINOPHEN
     Indication: Ovarian cyst
     Dosage: 500 MILLIGRAM AS NEEDED
     Route: 048
     Dates: start: 20201001
  9. IBUPROFEN [Concomitant]
     Active Substance: IBUPROFEN
     Indication: Analgesic therapy
     Dosage: UNK
     Route: 065
     Dates: start: 201706, end: 20180603
  10. IBUPROFEN [Concomitant]
     Active Substance: IBUPROFEN
     Dosage: UNK
     Route: 065
     Dates: start: 20180726
  11. ACETAMINOPHEN\HYDROCODONE [Concomitant]
     Active Substance: ACETAMINOPHEN\HYDROCODONE
     Indication: Analgesic therapy
     Dosage: UNK
     Route: 065
     Dates: start: 20180726
  12. ADVIL PM [Concomitant]
     Active Substance: DIPHENHYDRAMINE CITRATE\IBUPROFEN
     Indication: Insomnia
     Dosage: UNK
     Dates: start: 201705

REACTIONS (1)
  - Suicidal ideation [Not Recovered/Not Resolved]

NARRATIVE: CASE EVENT DATE: 20210927
